FAERS Safety Report 15316734 (Version 4)
Quarter: 2019Q1

REPORT INFORMATION
  Report Type: Spontaneous
  Country: US (occurrence: US)
  Receive Date: 20180824
  Receipt Date: 20190102
  Transmission Date: 20190417
  Serious: Yes (Other)
  Sender: FDA-Public Use
  Company Number: US-SA-2018SA229769

PATIENT
  Age: 33 Year
  Sex: Female

DRUGS (2)
  1. DUPIXENT [Suspect]
     Active Substance: DUPILUMAB
     Dosage: 300 MG, QOW
     Route: 058
     Dates: start: 2017
  2. DUPIXENT [Suspect]
     Active Substance: DUPILUMAB
     Dosage: 600 MG, 1X
     Route: 058
     Dates: start: 201709, end: 201709

REACTIONS (9)
  - Eye pain [Unknown]
  - Fungal infection [Unknown]
  - Eye inflammation [Unknown]
  - Eye discharge [Unknown]
  - Eye irritation [Unknown]
  - Haemorrhoid infection [Unknown]
  - Eyelid function disorder [Unknown]
  - Eye swelling [Unknown]
  - Dermatitis [Unknown]

NARRATIVE: CASE EVENT DATE: 20181019
